FAERS Safety Report 8559217-7 (Version None)
Quarter: 2012Q3

REPORT INFORMATION
  Report Type: 
  Country: None (occurrence: None)
  Receive Date: 20120720
  Receipt Date: 20120709
  Transmission Date: 20120928
  Serious: Yes (Death, Other)
  Sender: FDA-Public Use
  Company Number: 2012P1048752

PATIENT
  Age: 19 Year
  Sex: Female

DRUGS (3)
  1. STREPTOMYCIN [Concomitant]
  2. VALPROATE SODIUM [Suspect]
     Indication: CHOREA
     Dosage: 500 MG. BID;
  3. TETRADOX [Concomitant]

REACTIONS (12)
  - HAEMOGLOBIN DECREASED [None]
  - ENCEPHALOPATHY [None]
  - NEUTROPHIL TOXIC GRANULATION PRESENT [None]
  - RESPIRATORY ALKALOSIS [None]
  - INTERSTITIAL LUNG DISEASE [None]
  - ANTIBIOTIC RESISTANT STAPHYLOCOCCUS TEST POSITIVE [None]
  - ANTINEUTROPHIL CYTOPLASMIC ANTIBODY POSITIVE [None]
  - PLEURAL EFFUSION [None]
  - ACUTE TONSILLITIS [None]
  - GENERAL PHYSICAL HEALTH DETERIORATION [None]
  - DRUG RASH WITH EOSINOPHILIA AND SYSTEMIC SYMPTOMS [None]
  - METABOLIC ACIDOSIS [None]
